FAERS Safety Report 8965996 (Version 2)
Quarter: 2013Q1

REPORT INFORMATION
  Report Type: Report from Study
  Country: FR (occurrence: FR)
  Receive Date: 20121217
  Receipt Date: 20130212
  Transmission Date: 20140127
  Serious: Yes (Hospitalization)
  Sender: FDA-Public Use
  Company Number: FR-MILLENNIUM PHARMACEUTICALS, INC.-2012-08843

PATIENT
  Sex: 0

DRUGS (13)
  1. VELCADE [Suspect]
     Indication: PLASMA CELL MYELOMA
     Dosage: 1.3 MG/M2, CYCLIC
     Route: 065
     Dates: start: 20120316, end: 20120806
  2. REVLIMID [Suspect]
     Indication: PLASMA CELL MYELOMA
     Dosage: 25 MG, CYCLIC
     Route: 065
     Dates: start: 20120816, end: 20120908
  3. DEXAMETHASONE [Suspect]
     Indication: PLASMA CELL MYELOMA
     Dosage: 10 MG, CYCLIC
     Route: 065
     Dates: start: 20120816, end: 20120907
  4. BACTRIM [Concomitant]
     Indication: INFECTION PROPHYLAXIS
     Dosage: 400 MG, UNK
     Route: 048
  5. ZELITREX                           /01269701/ [Concomitant]
     Indication: INFECTION PROPHYLAXIS
     Dosage: 1 G, UNK
     Route: 048
  6. CLAMOXYL                           /00249601/ [Concomitant]
     Indication: INFECTION PROPHYLAXIS
     Dosage: 2 G, UNK
     Route: 048
  7. LOVENOX [Concomitant]
     Route: 058
  8. OXYCONTIN [Concomitant]
     Indication: PAIN
     Dosage: 60 MG, UNK
  9. OXYNORM [Concomitant]
     Indication: PAIN
     Dosage: 5 MG, UNK
  10. LYSANXIA [Concomitant]
     Dosage: 10 MG, UNK
  11. KALEORID [Concomitant]
  12. NOVORAPID [Concomitant]
     Indication: DIABETES MELLITUS
  13. NOVOMIX30 [Concomitant]
     Indication: DIABETES MELLITUS

REACTIONS (1)
  - Intracardiac thrombus [Recovered/Resolved]
